FAERS Safety Report 12741540 (Version 1)
Quarter: 2016Q3

REPORT INFORMATION
  Report Type: Report from Study
  Country: US (occurrence: US)
  Receive Date: 20160914
  Receipt Date: 20160914
  Transmission Date: 20161109
  Serious: Yes (Other)
  Sender: FDA-Public Use
  Company Number: US-AMGEN-USASP2016112969

PATIENT
  Age: 56 Year
  Sex: Female
  Weight: 79.3 kg

DRUGS (19)
  1. REPATHA [Suspect]
     Active Substance: EVOLOCUMAB
     Indication: HYPERCHOLESTEROLAEMIA
     Dosage: 140 MG, Q2WK
     Route: 058
     Dates: start: 20160415, end: 20160531
  2. REPATHA [Suspect]
     Active Substance: EVOLOCUMAB
     Indication: MYOCARDIAL ISCHAEMIA
  3. DILAUDID [Concomitant]
     Active Substance: HYDROMORPHONE HYDROCHLORIDE
  4. SILVER [Concomitant]
     Active Substance: SILVER
  5. PLAVIX [Concomitant]
     Active Substance: CLOPIDOGREL BISULFATE
  6. GEMFIBROZIL. [Concomitant]
     Active Substance: GEMFIBROZIL
  7. VITAMIN C [Concomitant]
     Active Substance: ASCORBIC ACID
  8. ZETIA [Concomitant]
     Active Substance: EZETIMIBE
  9. CENTRUM [Concomitant]
     Active Substance: VITAMINS
  10. REPATHA [Suspect]
     Active Substance: EVOLOCUMAB
     Indication: TYPE V HYPERLIPIDAEMIA
  11. BACLOFEN. [Concomitant]
     Active Substance: BACLOFEN
  12. TOPROL XL [Concomitant]
     Active Substance: METOPROLOL SUCCINATE
  13. ADVAIR HFA [Concomitant]
     Active Substance: FLUTICASONE PROPIONATE\SALMETEROL XINAFOATE
  14. OMEPRAZOLE. [Concomitant]
     Active Substance: OMEPRAZOLE
  15. WELCHOL [Concomitant]
     Active Substance: COLESEVELAM HYDROCHLORIDE
  16. ALBUTEROL. [Concomitant]
     Active Substance: ALBUTEROL
  17. NITROGLYCERIN. [Concomitant]
     Active Substance: NITROGLYCERIN
  18. MULTI VITAMINS + MINERALS [Concomitant]
  19. ASPIRIN. [Concomitant]
     Active Substance: ASPIRIN

REACTIONS (4)
  - Vascular rupture [Recovered/Resolved]
  - Peripheral swelling [Recovered/Resolved]
  - Contusion [Recovered/Resolved]
  - Pain in extremity [Not Recovered/Not Resolved]

NARRATIVE: CASE EVENT DATE: 20160531
